FAERS Safety Report 16754208 (Version 1)
Quarter: 2019Q3

REPORT INFORMATION
  Report Type: Spontaneous
  Country: GB (occurrence: GB)
  Receive Date: 20190829
  Receipt Date: 20190829
  Transmission Date: 20191005
  Serious: Yes (Other)
  Sender: FDA-Public Use
  Company Number: GB-PFIZER INC-2019369206

PATIENT
  Age: 31 Year
  Sex: Male
  Weight: 127 kg

DRUGS (4)
  1. FULTIUM D3 [Concomitant]
     Active Substance: CHOLECALCIFEROL
  2. EXEMESTANE. [Suspect]
     Active Substance: EXEMESTANE
     Indication: ANDROGEN REPLACEMENT THERAPY
     Dosage: 12.5 MG, ALTERNATE DAY
     Route: 048
     Dates: start: 20190701, end: 20190726
  3. TESTOSTERONE ENANTATE [Concomitant]
     Active Substance: TESTOSTERONE
  4. HUMAN CHORIONIC GONADOTROPIN [Concomitant]
     Active Substance: GONADOTROPHIN, CHORIONIC

REACTIONS (3)
  - Product use in unapproved indication [Unknown]
  - Oedema peripheral [Not Recovered/Not Resolved]
  - Off label use [Unknown]

NARRATIVE: CASE EVENT DATE: 20190721
